FAERS Safety Report 12356478 (Version 1)
Quarter: 2016Q2

REPORT INFORMATION
  Report Type: Spontaneous
  Country: None (occurrence: US)
  Receive Date: 20160511
  Receipt Date: 20160511
  Transmission Date: 20160815
  Serious: No
  Sender: FDA-Public Use
  Company Number: US-QOL MEDICAL, LLC-1051961

PATIENT
  Age: 23 Month
  Sex: Male
  Weight: 10.91 kg

DRUGS (4)
  1. MULTIVITAMIN [Concomitant]
     Active Substance: VITAMINS
  2. DHA VITAMIN [Concomitant]
  3. SUCRAID [Suspect]
     Active Substance: SACROSIDASE
     Indication: SUCRASE-ISOMALTASE DEFICIENCY
     Route: 048
     Dates: start: 20150301
  4. HYACIN [Concomitant]

REACTIONS (6)
  - Anal injury [Recovered/Resolved]
  - Dermatitis diaper [None]
  - Faeces soft [Recovered/Resolved]
  - Abdominal pain [Recovered/Resolved]
  - Haemorrhage [None]
  - Product quality issue [None]

NARRATIVE: CASE EVENT DATE: 20160323
